FAERS Safety Report 9581475 (Version 1)
Quarter: 2013Q4

REPORT INFORMATION
  Report Type: Report from Study
  Country: MX (occurrence: MX)
  Receive Date: 20131002
  Receipt Date: 20131002
  Transmission Date: 20140711
  Serious: Yes (Other)
  Sender: FDA-Public Use
  Company Number: PHHY2013MX109346

PATIENT
  Sex: Male

DRUGS (2)
  1. TRILEPTAL [Suspect]
     Dosage: 1 DF, BID (MOTHER DOSE)
     Route: 064
  2. TEGRETOL [Suspect]
     Dosage: 400 MG, (MOTHER DOSE)
     Route: 064

REACTIONS (2)
  - Umbilical cord around neck [Unknown]
  - Foetal exposure during pregnancy [Unknown]
